FAERS Safety Report 7854747-5 (Version None)
Quarter: 2011Q4

REPORT INFORMATION
  Report Type: 
  Country: None (occurrence: None)
  Receive Date: 20111026
  Receipt Date: 20110824
  Transmission Date: 20120403
  Serious: No
  Sender: FDA-Public Use
  Company Number: US-MUTUAL PHARMACEUTICAL COMPANY, INC.-CLCY20110116

PATIENT
  Sex: Female
  Weight: 101.7 kg

DRUGS (15)
  1. PRILOSEC [Concomitant]
     Indication: GASTROOESOPHAGEAL REFLUX DISEASE
     Route: 048
  2. PROBENECID [Suspect]
     Indication: GOUT
     Route: 048
     Dates: start: 20110818, end: 20110824
  3. METFORMIN HCL [Concomitant]
     Indication: DIABETES MELLITUS
     Route: 048
  4. THEOPHYLLINE [Concomitant]
     Indication: ASTHMA
     Route: 048
  5. ALPHA LIPOIC ACID [Concomitant]
     Indication: PRODUCT USED FOR UNKNOWN INDICATION
     Route: 048
  6. SPIRONOLACTONE [Concomitant]
     Indication: PULMONARY OEDEMA
     Route: 048
  7. FLOVENT [Concomitant]
     Indication: ASTHMA
  8. ZAFIRLUKAST [Concomitant]
     Indication: ASTHMA
     Route: 048
  9. COLCRYS [Suspect]
     Indication: GOUT
     Route: 048
     Dates: start: 20110818, end: 20110824
  10. BUDESONIDE [Concomitant]
     Indication: ASTHMA
     Route: 048
  11. ALBUTEROL SULFATE 0.83% [Concomitant]
     Indication: PRODUCT USED FOR UNKNOWN INDICATION
  12. ZETALIN [Concomitant]
     Indication: ASTHMA
  13. DALIRESP [Concomitant]
     Indication: CHRONIC OBSTRUCTIVE PULMONARY DISEASE
     Route: 048
     Dates: start: 20110811, end: 20110812
  14. ALBUTEROL SULFATE [Concomitant]
     Indication: ASTHMA
     Route: 048
  15. ADVAIR DISKUS 500/50 [Concomitant]
     Indication: ASTHMA

REACTIONS (9)
  - PARAESTHESIA [None]
  - DYSPNOEA [None]
  - HYPOAESTHESIA [None]
  - FATIGUE [None]
  - NAUSEA [None]
  - DYSPEPSIA [None]
  - CHILLS [None]
  - DECREASED APPETITE [None]
  - DIZZINESS [None]
